FAERS Safety Report 16843698 (Version 1)
Quarter: 2019Q4

REPORT INFORMATION
  Report Type: Spontaneous
  Country: US (occurrence: US)
  Receive Date: 20190923
  Receipt Date: 20190923
  Transmission Date: 20200122
  Serious: Yes (Other)
  Sender: FDA-Public Use
  Company Number: None

PATIENT
  Age: 66 Year
  Sex: Male
  Weight: 105.75 kg

DRUGS (4)
  1. BACTERIOSTATIC WATER [Suspect]
     Active Substance: WATER
     Indication: MULTIPLE SCLEROSIS
     Route: 042
     Dates: start: 20190826, end: 20190828
  2. HEPARIN FLUSH [Concomitant]
     Active Substance: HEPARIN SODIUM
     Dates: start: 20190826, end: 20190828
  3. SOD CHLORIDE FLUSH [Concomitant]
     Dates: start: 20190826, end: 20190828
  4. METHYLPREDNISOLONE. [Suspect]
     Active Substance: METHYLPREDNISOLONE

REACTIONS (3)
  - Recalled product administered [None]
  - Product sterility lacking [None]
  - Rash [None]

NARRATIVE: CASE EVENT DATE: 20190828
